FAERS Safety Report 7310319-2 (Version None)
Quarter: 2011Q1

REPORT INFORMATION
  Report Type: 
  Country: None (occurrence: None)
  Receive Date: 20110224
  Receipt Date: 20110209
  Transmission Date: 20110831
  Serious: No
  Sender: FDA-Public Use
  Company Number: US-TYCO HEALTHCARE/MALLINCKRODT-T201100016

PATIENT
  Age: 80 Year
  Sex: Male

DRUGS (2)
  1. TECHNESCAN [Suspect]
     Indication: BONE SCAN
     Dosage: UNK UNK, SINGLE
     Dates: start: 20101230, end: 20101230
  2. ULTRA-TECHNEKOW [Concomitant]
     Indication: BONE SCAN
     Dosage: UNK UNK, SINGLE
     Dates: start: 20101230, end: 20101230

REACTIONS (1)
  - DRUG INEFFECTIVE [None]
